FAERS Safety Report 14797995 (Version 1)
Quarter: 2018Q2

REPORT INFORMATION
  Report Type: Report from Study
  Country: TW (occurrence: TW)
  Receive Date: 20180424
  Receipt Date: 20180424
  Transmission Date: 20180711
  Serious: Yes (Death, Hospitalization)
  Sender: FDA-Public Use
  Company Number: TW-INCYTE CORPORATION-2018IN003866

PATIENT

DRUGS (1)
  1. JAKAVI [Suspect]
     Active Substance: RUXOLITINIB
     Indication: MYELOFIBROSIS
     Dosage: 5 MG, BID
     Route: 048
     Dates: start: 20170223, end: 20180418

REACTIONS (4)
  - Pyrexia [Fatal]
  - Pain [Fatal]
  - Asthenia [Fatal]
  - Dizziness [Fatal]

NARRATIVE: CASE EVENT DATE: 20180416
